FAERS Safety Report 20937224 (Version 7)
Quarter: 2025Q1

REPORT INFORMATION
  Report Type: Report from Study
  Country: US (occurrence: US)
  Receive Date: 20220609
  Receipt Date: 20250306
  Transmission Date: 20250409
  Serious: Yes (Hospitalization, Other)
  Sender: ABBVIE
  Company Number: US-ABBVIE-22K-163-4425713-00

PATIENT
  Age: 67 Year
  Sex: Female

DRUGS (8)
  1. HUMIRA [Suspect]
     Active Substance: ADALIMUMAB
     Indication: Rheumatoid arthritis
     Route: 058
     Dates: start: 20200524
  2. HUMIRA [Suspect]
     Active Substance: ADALIMUMAB
     Route: 058
     Dates: end: 20240521
  3. HUMIRA [Suspect]
     Active Substance: ADALIMUMAB
     Route: 058
     Dates: start: 20240521
  4. HUMIRA [Suspect]
     Active Substance: ADALIMUMAB
     Dosage: CITRATE FREE?STOP DATE: 2024
     Route: 058
     Dates: start: 20240123
  5. MODERNA COVID-19 VACCINE [Concomitant]
     Active Substance: ELASOMERAN
     Indication: COVID-19 immunisation
     Route: 030
     Dates: start: 20210317, end: 20210317
  6. MODERNA COVID-19 VACCINE [Concomitant]
     Active Substance: ELASOMERAN
     Indication: COVID-19 immunisation
     Route: 030
     Dates: start: 20210414, end: 20210414
  7. MODERNA COVID-19 VACCINE [Concomitant]
     Active Substance: ELASOMERAN
     Indication: COVID-19 immunisation
     Route: 030
  8. LAMISIL [Suspect]
     Active Substance: TERBINAFINE HYDROCHLORIDE
     Indication: Onychomycosis
     Route: 065

REACTIONS (38)
  - Staphylococcus test positive [Recovered/Resolved]
  - Inappropriate schedule of product administration [Recovered/Resolved]
  - Aphonia [Recovering/Resolving]
  - Arthrodesis [Unknown]
  - Post procedural infection [Unknown]
  - Immunodeficiency [Recovering/Resolving]
  - Bronchitis [Recovering/Resolving]
  - Injection site pruritus [Recovering/Resolving]
  - Shoulder operation [Recovered/Resolved]
  - Injection site erythema [Unknown]
  - COVID-19 [Recovered/Resolved]
  - Injection site urticaria [Recovering/Resolving]
  - Lower respiratory tract infection [Recovering/Resolving]
  - Peripheral swelling [Recovered/Resolved]
  - Nasopharyngitis [Recovering/Resolving]
  - Injection site swelling [Unknown]
  - Onychomycosis [Unknown]
  - Illness [Recovering/Resolving]
  - Streptococcus test positive [Recovered/Resolved]
  - Rash papular [Unknown]
  - Rash pruritic [Recovering/Resolving]
  - Shoulder arthroplasty [Recovered/Resolved]
  - Dermatitis [Recovered/Resolved]
  - COVID-19 [Recovered/Resolved]
  - Arthralgia [Unknown]
  - Pain [Unknown]
  - Blood magnesium decreased [Recovered/Resolved]
  - Osteoporosis [Not Recovered/Not Resolved]
  - Postoperative wound infection [Recovering/Resolving]
  - Bone density decreased [Not Recovered/Not Resolved]
  - Bone disorder [Recovered/Resolved]
  - Accident at home [Recovered/Resolved]
  - Onychalgia [Not Recovered/Not Resolved]
  - Pneumonia [Recovering/Resolving]
  - Colitis [Recovering/Resolving]
  - Diarrhoea [Not Recovered/Not Resolved]
  - Constipation [Not Recovered/Not Resolved]
  - Traumatic pain [Recovered/Resolved]

NARRATIVE: CASE EVENT DATE: 20220501
